FAERS Safety Report 5397987-X (Version None)
Quarter: 2007Q3

REPORT INFORMATION
  Report Type: 
  Country: None (occurrence: None)
  Receive Date: 20070726
  Receipt Date: 20070718
  Transmission Date: 20080115
  Serious: Yes (Hospitalization)
  Sender: FDA-Public Use
  Company Number: US-ELI_LILLY_AND_COMPANY-US200706002988

PATIENT
  Age: 89 Year
  Sex: Female
  Weight: 38.095 kg

DRUGS (3)
  1. ZYPREXA [Suspect]
  2. RISPERIDONE [Concomitant]
  3. METOPROLOL SUCCINATE [Concomitant]

REACTIONS (3)
  - DIABETES MELLITUS [None]
  - THROMBOSIS [None]
  - WEIGHT INCREASED [None]
